FAERS Safety Report 12874452 (Version 9)
Quarter: 2017Q2

REPORT INFORMATION
  Report Type: Spontaneous
  Country: US (occurrence: US)
  Receive Date: 20161021
  Receipt Date: 20170525
  Transmission Date: 20170830
  Serious: Yes (Hospitalization)
  Sender: FDA-Public Use
  Company Number: US-ACTELION-A-US2016-143871

PATIENT
  Age: 70 Year
  Sex: Male
  Weight: 81.18 kg

DRUGS (5)
  1. VELETRI [Suspect]
     Active Substance: EPOPROSTENOL
     Dosage: 30 NG/KG, PER MIN
     Route: 042
  2. AMLODIPINE [Concomitant]
     Active Substance: AMLODIPINE BESYLATE
  3. VELETRI [Suspect]
     Active Substance: EPOPROSTENOL
     Indication: PULMONARY ARTERIAL HYPERTENSION
     Dosage: 14 MG/KG, PER MIN
     Route: 042
     Dates: start: 20161017
  4. VELETRI [Suspect]
     Active Substance: EPOPROSTENOL
     Dosage: 10 NG/KG, PER MIN
     Route: 042
  5. REVATIO [Concomitant]
     Active Substance: SILDENAFIL CITRATE

REACTIONS (15)
  - Catheter site erythema [Unknown]
  - Respiratory tract infection [Unknown]
  - Catheter site pruritus [Unknown]
  - Headache [Unknown]
  - Skin abrasion [Unknown]
  - Cough [Unknown]
  - Catheter site pain [Unknown]
  - Infusion site irritation [Unknown]
  - Viral upper respiratory tract infection [Unknown]
  - Infusion site rash [Unknown]
  - Catheter site discharge [Unknown]
  - Chest pain [Unknown]
  - Pain in jaw [Unknown]
  - Diarrhoea [Unknown]
  - Catheter site infection [Unknown]

NARRATIVE: CASE EVENT DATE: 20170118
